FAERS Safety Report 7768767 (Version 3)
Quarter: 2012Q4

REPORT INFORMATION
  Report Type: 
  Country: IT (occurrence: IT)
  Receive Date: 20110121
  Receipt Date: 20121015
  Transmission Date: 20130627
  Serious: Yes (Hospitalization)
  Sender: FDA-Public Use
  Company Number: IT-AMGEN-ITASP2011002700

PATIENT
  Age: 58 Year
  Sex: Male

DRUGS (1)
  1. VECTIBIX [Suspect]
     Indication: COLON CANCER
     Dosage: 600 mg, UNK
     Route: 041
     Dates: start: 20100726, end: 20100726

REACTIONS (2)
  - Syncope [Recovered/Resolved]
  - Clonic convulsion [Recovered/Resolved]
